FAERS Safety Report 9832129 (Version 2)
Quarter: 2014Q1

REPORT INFORMATION
  Report Type: Report from Study
  Country: US (occurrence: US)
  Receive Date: 20140121
  Receipt Date: 20140124
  Transmission Date: 20141002
  Serious: Yes (Hospitalization)
  Sender: FDA-Public Use
  Company Number: US-JNJFOC-20140108424

PATIENT
  Age: 17 Year
  Sex: Female
  Weight: 64.3 kg

DRUGS (6)
  1. REMICADE [Suspect]
     Indication: IRRITABLE BOWEL SYNDROME
     Route: 042
     Dates: start: 20081202
  2. HUMIRA [Suspect]
     Indication: IRRITABLE BOWEL SYNDROME
     Route: 058
     Dates: start: 20090903
  3. MULTIVITAMINS [Concomitant]
     Route: 065
  4. CALCIUM CARBONATE [Concomitant]
     Route: 065
  5. LOMOTIL [Concomitant]
     Route: 065
  6. LOPERAMIDE [Concomitant]
     Route: 065

REACTIONS (1)
  - Hyponatraemia [Recovered/Resolved]
